FAERS Safety Report 13632629 (Version 1)
Quarter: 2017Q2

REPORT INFORMATION
  Report Type: Spontaneous
  Country: US (occurrence: US)
  Receive Date: 20170531
  Receipt Date: 20170531
  Transmission Date: 20170830
  Serious: No
  Sender: FDA-Public Use
  Company Number: US-ASTELLAS-1470296

PATIENT
  Age: 64 Year
  Sex: Male

DRUGS (4)
  1. TARCEVA [Suspect]
     Active Substance: ERLOTINIB HYDROCHLORIDE
     Indication: NEOPLASM MALIGNANT
     Dosage: THERAPY START DATE: 11/SEP/2014, FREQUENCY: DAILY
     Route: 048
  2. ATORVASTATIN [Concomitant]
     Active Substance: ATORVASTATIN
     Route: 065
     Dates: start: 20140810
  3. TRAMADOL. [Concomitant]
     Active Substance: TRAMADOL
     Route: 065
     Dates: start: 20140823
  4. NYSTATIN. [Concomitant]
     Active Substance: NYSTATIN
     Route: 048
     Dates: start: 20140919

REACTIONS (6)
  - Increased upper airway secretion [Recovering/Resolving]
  - Stomatitis [Unknown]
  - Weight decreased [Unknown]
  - Rash [Recovering/Resolving]
  - Decreased appetite [Unknown]
  - Blister [Recovering/Resolving]

NARRATIVE: CASE EVENT DATE: 201409
